FAERS Safety Report 12749497 (Version 1)
Quarter: 2016Q3

REPORT INFORMATION
  Report Type: Spontaneous
  Country: US (occurrence: US)
  Receive Date: 20160915
  Receipt Date: 20160915
  Transmission Date: 20161109
  Serious: Yes (Other)
  Sender: FDA-Public Use
  Company Number: US-THE MENTHOLATUM COMPANY-1057351

PATIENT
  Sex: Female

DRUGS (2)
  1. OXY RAPID TREATMENT FACE WASH MAXIMUM ACTION [Suspect]
     Active Substance: BENZOYL PEROXIDE
     Route: 061
  2. OXY RAPID SPOT TREATMENT [Concomitant]
     Route: 061

REACTIONS (1)
  - Hypersensitivity [Recovered/Resolved]
